FAERS Safety Report 4467105-0 (Version None)
Quarter: 2004Q4

REPORT INFORMATION
  Report Type: 
  Country: None (occurrence: None)
  Receive Date: 20041004
  Receipt Date: 20041004
  Transmission Date: 20050328
  Serious: Yes (Death)
  Sender: FDA-Public Use
  Company Number: None

PATIENT
  Sex: Female
  Weight: 55.3388 kg

DRUGS (2)
  1. TOPETECAN [Suspect]
     Indication: SMALL CELL CARCINOMA
     Dosage: 3 MG /M2 Q WEEK IV
     Route: 042
     Dates: start: 20040816, end: 20040902
  2. OXYCONTIN [Concomitant]

REACTIONS (2)
  - DISEASE PROGRESSION [None]
  - HYPOXIA [None]
